FAERS Safety Report 24196125 (Version 2)
Quarter: 2024Q4

REPORT INFORMATION
  Report Type: Spontaneous
  Country: US (occurrence: US)
  Receive Date: 20240809
  Receipt Date: 20241016
  Transmission Date: 20250115
  Serious: Yes (Hospitalization)
  Sender: RADIUS PHARM
  Company Number: US-RADIUS HEALTH, INC.-2024US005964

PATIENT
  Age: 57 Year
  Sex: Female

DRUGS (1)
  1. TYMLOS [Suspect]
     Active Substance: ABALOPARATIDE
     Indication: Senile osteoporosis
     Dosage: 80 MCG, DAILY
     Route: 058
     Dates: start: 20230729

REACTIONS (10)
  - COVID-19 [Unknown]
  - Hallucination [Unknown]
  - Loss of consciousness [Unknown]
  - Amnesia [Unknown]
  - Influenza [Unknown]
  - Pelvic fracture [Unknown]
  - Loss of personal independence in daily activities [Unknown]
  - Wrist fracture [Unknown]
  - Sinusitis [Unknown]
  - Product dose omission issue [Unknown]

NARRATIVE: CASE EVENT DATE: 20230601
